FAERS Safety Report 7036189-8 (Version None)
Quarter: 2010Q4

REPORT INFORMATION
  Report Type: 
  Country: None (occurrence: None)
  Receive Date: 20101008
  Receipt Date: 20100722
  Transmission Date: 20110411
  Serious: No
  Sender: FDA-Public Use
  Company Number: US-BRISTOL-MYERS SQUIBB COMPANY-15206469

PATIENT
  Age: 78 Year
  Sex: Female

DRUGS (3)
  1. IRBESARTAN [Suspect]
     Dosage: IRBESARTAN 300 MG TABLET
     Route: 048
     Dates: start: 20070701, end: 20070801
  2. LANSOPRAZOLE [Concomitant]
     Dosage: 1 DF= 1 CAPS, LANSOPRAZOLE 5MG CAPS
     Route: 048
     Dates: start: 20080101
  3. VENTOLIN [Concomitant]
     Route: 055
     Dates: start: 20080101

REACTIONS (1)
  - OVERDOSE [None]
